FAERS Safety Report 8421329-6 (Version None)
Quarter: 2012Q2

REPORT INFORMATION
  Report Type: 
  Country: None (occurrence: None)
  Receive Date: 20120608
  Receipt Date: 20120531
  Transmission Date: 20120825
  Serious: Yes (Hospitalization, Other)
  Sender: FDA-Public Use
  Company Number: PHHY2008JP11869

PATIENT
  Sex: Female

DRUGS (16)
  1. PROGRAF [Suspect]
     Dosage: 2 MG, UNK
     Route: 048
     Dates: start: 20050228, end: 20050313
  2. CERTICAN [Suspect]
     Dosage: UNK
     Dates: start: 20070806
  3. RITUXIMAB [Concomitant]
  4. COTRIM [Concomitant]
     Indication: ANTIFUNGAL PROPHYLAXIS
     Dosage: 1.5 G, UNK
     Route: 048
     Dates: start: 20010501
  5. POLYGAM S/D [Concomitant]
  6. PROGRAF [Suspect]
     Dosage: 2.8 MG, UNK
     Route: 048
     Dates: start: 20050314
  7. CELLCEPT [Suspect]
     Indication: HEART TRANSPLANT
     Dosage: 125 MG, UNK
     Route: 048
     Dates: start: 20040802
  8. CERTICAN [Suspect]
     Dosage: 1.5 MG, UNK
     Route: 048
     Dates: start: 20050304, end: 20050516
  9. CERTICAN [Suspect]
     Indication: HEART TRANSPLANT
     Dosage: 0.5 MG, QD
     Route: 048
     Dates: start: 20050221
  10. TACROLIMUS [Suspect]
     Indication: HEART TRANSPLANT
  11. PREDNISOLONE [Concomitant]
  12. CERTICAN [Suspect]
     Dosage: 1 MG, QD
     Route: 048
     Dates: start: 20050228, end: 20050303
  13. CERTICAN [Suspect]
     Dosage: UNK
     Dates: start: 20070220
  14. PROGRAF [Suspect]
     Indication: HEART TRANSPLANT
     Dosage: 3.6 MG, UNK
     Route: 048
     Dates: end: 20050227
  15. PREDNISOLONE [Suspect]
     Indication: HEART TRANSPLANT
     Dosage: 2 MG, UNK
     Route: 048
     Dates: start: 20010501
  16. ENALAPRIL MALEATE [Concomitant]
     Indication: HYPERTENSION
     Dosage: 1.25 MG, UNK
     Route: 048
     Dates: start: 20010501

REACTIONS (21)
  - WHITE BLOOD CELL COUNT INCREASED [None]
  - SNORING [None]
  - VOMITING [None]
  - ABDOMINAL PAIN [None]
  - HEART TRANSPLANT REJECTION [None]
  - PYREXIA [None]
  - POST TRANSPLANT LYMPHOPROLIFERATIVE DISORDER [None]
  - C-REACTIVE PROTEIN INCREASED [None]
  - DIARRHOEA [None]
  - BRAIN NATRIURETIC PEPTIDE INCREASED [None]
  - CARDIAC HYPERTROPHY [None]
  - OBSTRUCTIVE AIRWAYS DISORDER [None]
  - LYMPHADENOPATHY [None]
  - HYPERCHOLESTEROLAEMIA [None]
  - PNEUMONIA [None]
  - BRONCHITIS [None]
  - MYOCARDIAL OEDEMA [None]
  - LARYNGEAL NEOPLASM [None]
  - INFLUENZA LIKE ILLNESS [None]
  - PERICARDIAL EFFUSION [None]
  - LARYNGEAL OEDEMA [None]
